FAERS Safety Report 15722021 (Version 1)
Quarter: 2018Q4

REPORT INFORMATION
  Report Type: Spontaneous
  Country: US (occurrence: US)
  Receive Date: 20181207
  Receipt Date: 20181207
  Transmission Date: 20190205
  Serious: No
  Sender: FDA-Public Use
  Company Number: None

PATIENT
  Age: 64 Year

DRUGS (1)
  1. MAVYRET [Suspect]
     Active Substance: GLECAPREVIR\PIBRENTASVIR

REACTIONS (3)
  - Treatment noncompliance [None]
  - Headache [None]
  - Product dose omission [None]

NARRATIVE: CASE EVENT DATE: 20181206
